FAERS Safety Report 26009310 (Version 2)
Quarter: 2025Q4

REPORT INFORMATION
  Report Type: Spontaneous
  Country: US (occurrence: None)
  Receive Date: 20251107
  Receipt Date: 20251120
  Transmission Date: 20260118
  Serious: No
  Sender: ENCUBE ETHICALS PVT. LTD.
  Company Number: US-Encube-002577

PATIENT
  Age: 83 Year
  Sex: Female

DRUGS (2)
  1. CICLOPIROX [Suspect]
     Active Substance: CICLOPIROX
     Indication: Onychomycosis
     Dosage: SOLUTION
     Dates: start: 20251015, end: 20251028
  2. KETOCONAZOLE [Concomitant]
     Active Substance: KETOCONAZOLE
     Indication: Nail disorder

REACTIONS (1)
  - Nail discolouration [Recovered/Resolved]

NARRATIVE: CASE EVENT DATE: 20251026
